FAERS Safety Report 21790861 (Version 2)
Quarter: 2023Q1

REPORT INFORMATION
  Report Type: Spontaneous
  Country: IT (occurrence: IT)
  Receive Date: 20221228
  Receipt Date: 20230104
  Transmission Date: 20230418
  Serious: Yes (Death, Hospitalization, Other)
  Sender: FDA-Public Use
  Company Number: IT-BIOVITRUM-2022IT15183

PATIENT
  Age: 2 Month
  Sex: Male

DRUGS (29)
  1. DEXAMETHASONE [Suspect]
     Active Substance: DEXAMETHASONE
     Indication: Product used for unknown indication
     Dosage: 10 MG/MQ/DAY (3 MG INTO 2/DAY) TAPERING UNTIL 04/DEC/22 WHEN THE DOSE RE ADJUSTED TO 10 MG/MQ/DAY
     Route: 065
     Dates: start: 20220809, end: 20220818
  2. GAMIFANT [Suspect]
     Active Substance: EMAPALUMAB-LZSG
     Indication: Product used for unknown indication
     Dosage: PATIENT GLOBALLY RECEIVED 6 INFUSIONS (DOSE 3 MG/KG, TWO TIMES PER WEEK)
     Route: 065
     Dates: start: 20221110, end: 20221128
  3. ANAKINRA [Suspect]
     Active Substance: ANAKINRA
     Indication: Familial haemophagocytic lymphohistiocytosis
     Route: 065
     Dates: start: 20221004, end: 20221027
  4. FOSFOMYCIN [Concomitant]
     Active Substance: FOSFOMYCIN
     Indication: Product used for unknown indication
     Dates: start: 20221003, end: 20221103
  5. AMIKACIN [Concomitant]
     Active Substance: AMIKACIN
     Indication: Product used for unknown indication
     Dates: start: 20221004, end: 20221012
  6. AMIKACIN [Concomitant]
     Active Substance: AMIKACIN
     Dates: start: 20221018, end: 20221031
  7. AMPHOTERICIN B [Concomitant]
     Active Substance: AMPHOTERICIN B
     Indication: Product used for unknown indication
     Dates: start: 20220809, end: 20220929
  8. TIGECYCLINE [Concomitant]
     Active Substance: TIGECYCLINE
     Indication: Product used for unknown indication
     Dates: start: 20221110, end: 20221116
  9. TIGECYCLINE [Concomitant]
     Active Substance: TIGECYCLINE
     Dates: start: 20221207, end: 20221213
  10. TIGECYCLINE [Concomitant]
     Active Substance: TIGECYCLINE
     Dates: start: 20221017, end: 20221031
  11. TIGECYCLINE [Concomitant]
     Active Substance: TIGECYCLINE
     Dates: start: 20221003, end: 20221014
  12. ESOMEPRAZOLE [Concomitant]
     Active Substance: ESOMEPRAZOLE
     Indication: Product used for unknown indication
     Dates: start: 20220809, end: 20221216
  13. RAMIPRIL [Concomitant]
     Active Substance: RAMIPRIL
     Indication: Product used for unknown indication
     Dates: start: 20220809, end: 20221211
  14. RUXOLITINIB [Concomitant]
     Active Substance: RUXOLITINIB
     Indication: Product used for unknown indication
     Dosage: PER OS 2/ DAY
     Dates: start: 20220922, end: 20221216
  15. ACYCLOVIR [Concomitant]
     Active Substance: ACYCLOVIR
     Indication: Product used for unknown indication
     Dates: start: 20220809, end: 20221216
  16. DAPTOMYCIN [Concomitant]
     Active Substance: DAPTOMYCIN
     Indication: Product used for unknown indication
     Dates: start: 20221102, end: 20221216
  17. LACOSAMIDE [Concomitant]
     Active Substance: LACOSAMIDE
     Indication: Product used for unknown indication
     Dates: start: 20221004, end: 20221216
  18. CASPOFUNGIN [Concomitant]
     Active Substance: CASPOFUNGIN
     Indication: Product used for unknown indication
     Dates: start: 20220930, end: 20221216
  19. AMLODIPINE BESYLATE [Concomitant]
     Active Substance: AMLODIPINE BESYLATE
     Indication: Product used for unknown indication
     Dates: start: 20220809, end: 20221211
  20. LEVETIRACETAM [Concomitant]
     Active Substance: LEVETIRACETAM
     Indication: Product used for unknown indication
     Dates: start: 20221003, end: 20221216
  21. CLONAZEPAM [Concomitant]
     Active Substance: CLONAZEPAM
     Indication: Product used for unknown indication
     Dosage: 5 DROPS
     Dates: start: 20221004, end: 20221216
  22. MEROPENEM [Concomitant]
     Active Substance: MEROPENEM
     Indication: Product used for unknown indication
     Dates: start: 20220809, end: 20220821
  23. MEROPENEM [Concomitant]
     Active Substance: MEROPENEM
     Dates: start: 20221003, end: 20221117
  24. PIPERACILLIN AND TAZOBACTAM [Concomitant]
     Active Substance: PIPERACILLIN SODIUM\TAZOBACTAM SODIUM
     Indication: Product used for unknown indication
     Dosage: PIPERCILLIN/TAZOBACTAM
     Dates: start: 20221118, end: 20221216
  25. PIPERACILLIN AND TAZOBACTAM [Concomitant]
     Active Substance: PIPERACILLIN SODIUM\TAZOBACTAM SODIUM
     Dates: start: 20220822, end: 20221004
  26. CYCLOSPORINE [Concomitant]
     Active Substance: CYCLOSPORINE
     Indication: Product used for unknown indication
     Dates: start: 20220809, end: 20221004
  27. MIDAZOLAM [Concomitant]
     Active Substance: MIDAZOLAM
     Indication: Product used for unknown indication
     Dates: start: 20221004, end: 20221214
  28. BACTRIM [Concomitant]
     Active Substance: SULFAMETHOXAZOLE\TRIMETHOPRIM
     Indication: Product used for unknown indication
     Dosage: 2 PER DAY FOR 3 DAYS
     Dates: start: 20220809, end: 20221216
  29. AVIBACTAM SODIUM\CEFTAZIDIME [Concomitant]
     Active Substance: AVIBACTAM SODIUM\CEFTAZIDIME
     Indication: Product used for unknown indication
     Dosage: CEFTAZIDIME/AVIBACTAM
     Dates: start: 20221018, end: 20221031

REACTIONS (6)
  - Bacterial sepsis [Fatal]
  - Hypotension [Fatal]
  - Brain death [Fatal]
  - Nervous system disorder [Fatal]
  - Generalised tonic-clonic seizure [Fatal]
  - Off label use [Unknown]

NARRATIVE: CASE EVENT DATE: 20221008
